FAERS Safety Report 7415307-3 (Version None)
Quarter: 2011Q2

REPORT INFORMATION
  Report Type: 
  Country: None (occurrence: None)
  Receive Date: 20110406
  Receipt Date: 20110318
  Transmission Date: 20111010
  Serious: Yes (Hospitalization, Other)
  Sender: FDA-Public Use
  Company Number: JPI-P-010561

PATIENT
  Age: 61 Year
  Sex: Male

DRUGS (8)
  1. XYREM [Suspect]
     Indication: NARCOLEPSY
     Dosage: 8 GM (4 GM, 2 IN 1 D), ORAL
     Route: 048
     Dates: start: 20100129, end: 20110216
  2. XYREM [Suspect]
     Indication: DYSSOMNIA
     Dosage: 8 GM (4 GM, 2 IN 1 D), ORAL
     Route: 048
     Dates: start: 20100129, end: 20110216
  3. RAMIPRIL [Concomitant]
  4. OMEPRAZOLE [Concomitant]
  5. AMLODIPINE BESYLATE [Concomitant]
  6. ATENOLOL [Concomitant]
  7. MODAFINIL [Concomitant]
  8. ATORVASTATIN CALCIUM [Concomitant]

REACTIONS (16)
  - ENURESIS [None]
  - LEUKOCYTOSIS [None]
  - AMNESIA [None]
  - ARTHRALGIA [None]
  - NOCTURIA [None]
  - ABNORMAL DREAMS [None]
  - MALAISE [None]
  - AGGRESSION [None]
  - CRYING [None]
  - MUSCLE TIGHTNESS [None]
  - INSOMNIA [None]
  - AGITATION [None]
  - ARTERIAL DISORDER [None]
  - RENAL NEOPLASM [None]
  - CONFUSIONAL STATE [None]
  - APPETITE DISORDER [None]
